FAERS Safety Report 4999434-6 (Version None)
Quarter: 2006Q2

REPORT INFORMATION
  Report Type: 
  Country: None (occurrence: None)
  Receive Date: 20060511
  Receipt Date: 20060510
  Transmission Date: 20061013
  Serious: Yes (Other)
  Sender: FDA-Public Use
  Company Number: PHBS2006ES06874

PATIENT
  Age: 81 Year
  Sex: Female

DRUGS (1)
  1. DIOVAN [Suspect]
     Indication: HYPERTENSION
     Dosage: 160 MG/DAY
     Route: 048
     Dates: start: 20060313, end: 20060328

REACTIONS (3)
  - DIZZINESS [None]
  - DRUG LEVEL INCREASED [None]
  - SPEECH DISORDER [None]
